FAERS Safety Report 21969584 (Version 1)
Quarter: 2023Q1

REPORT INFORMATION
  Report Type: Spontaneous
  Country: CN (occurrence: None)
  Receive Date: 20230208
  Receipt Date: 20230208
  Transmission Date: 20230417
  Serious: Yes (Hospitalization)
  Sender: FDA-Public Use
  Company Number: CN-Eisai Medical Research-EC-2023-133516

PATIENT
  Age: 60 Year
  Sex: Female

DRUGS (5)
  1. HALAVEN [Suspect]
     Active Substance: ERIBULIN MESYLATE
     Indication: Breast cancer
     Route: 042
     Dates: start: 20230124
  2. GEMCITABINE HYDROCHLORIDE [Suspect]
     Active Substance: GEMCITABINE HYDROCHLORIDE
     Indication: Breast cancer
     Route: 041
     Dates: start: 20230109
  3. APATINIB [Suspect]
     Active Substance: APATINIB
     Indication: Breast cancer
     Route: 048
     Dates: start: 20230124
  4. CISPLATIN [Suspect]
     Active Substance: CISPLATIN
     Indication: Breast cancer
     Route: 041
     Dates: start: 20230109
  5. CAMRELIZUMAB [Suspect]
     Active Substance: CAMRELIZUMAB
     Indication: Breast cancer
     Route: 041
     Dates: start: 20230124

REACTIONS (1)
  - Myelosuppression [Recovering/Resolving]

NARRATIVE: CASE EVENT DATE: 20230128
